FAERS Safety Report 25028912 (Version 1)
Quarter: 2025Q1

REPORT INFORMATION
  Report Type: Spontaneous
  Country: US (occurrence: US)
  Receive Date: 20250302
  Receipt Date: 20250302
  Transmission Date: 20250409
  Serious: No
  Sender: BAUSCH AND LOMB
  Company Number: US-BAUSCHBL-2025BNL003037

PATIENT
  Age: 70 Year
  Sex: Female

DRUGS (3)
  1. XIIDRA [Suspect]
     Active Substance: LIFITEGRAST
     Indication: Dry eye
     Route: 047
  2. VITAMINS [Concomitant]
     Active Substance: VITAMINS
     Indication: Product used for unknown indication
     Route: 065
  3. ZITUVIO [Concomitant]
     Active Substance: SITAGLIPTIN
     Indication: Product used for unknown indication
     Route: 065

REACTIONS (8)
  - Chest pain [Unknown]
  - Muscular weakness [Unknown]
  - Eye irritation [Unknown]
  - Dysgeusia [Unknown]
  - Eye pruritus [Unknown]
  - Vision blurred [Unknown]
  - Intentional product use issue [Unknown]
  - Product after taste [Unknown]
